FAERS Safety Report 8165419-4 (Version None)
Quarter: 2012Q1

REPORT INFORMATION
  Report Type: 
  Country: None (occurrence: None)
  Receive Date: 20120227
  Receipt Date: 20120217
  Transmission Date: 20120608
  Serious: Yes (Other)
  Sender: FDA-Public Use
  Company Number: US-BAYER-200937680NA

PATIENT
  Age: 55 Year
  Sex: Male
  Weight: 95 kg

DRUGS (40)
  1. PHENYLEPHRINE HCL [Concomitant]
     Dosage: 50 MG, UNK
     Route: 042
     Dates: start: 20010630, end: 20010630
  2. ANCEF [Concomitant]
     Dosage: 2 G, UNK
     Route: 042
     Dates: start: 20010630, end: 20010630
  3. PHYTONADIONE [Concomitant]
     Dosage: 10 MG, UNK
     Route: 042
     Dates: start: 20010630, end: 20010630
  4. NAFCILLIN [Concomitant]
     Dosage: 1 GRAM X2
     Route: 042
     Dates: start: 20020122, end: 20020122
  5. HEPARIN [Concomitant]
     Dosage: UNK
     Route: 042
     Dates: start: 20020122, end: 20020122
  6. ASPIRIN [Concomitant]
     Dosage: 240 MG, ONCE
     Dates: start: 20010630, end: 20010630
  7. NORVASC [Concomitant]
     Dosage: 10 MG  DAILY
     Route: 048
  8. LABETALOL HCL [Concomitant]
     Dosage: 200 MG, BID
     Route: 048
  9. NORMOSOL [Concomitant]
     Dosage: 630 CC, UNK
     Route: 042
     Dates: start: 20010630, end: 20010630
  10. SUFENTA PRESERVATIVE FREE [Concomitant]
     Dosage: UNK
     Route: 042
     Dates: start: 20010630, end: 20010630
  11. VERSED [Concomitant]
     Dosage: UNK
     Route: 042
     Dates: start: 20010630, end: 20010630
  12. VERSED [Concomitant]
     Dosage: UNK
     Route: 042
     Dates: start: 20020122, end: 20020122
  13. ANCEF [Concomitant]
     Dosage: 1 UNK, UNK
     Route: 042
     Dates: start: 20010630, end: 20010630
  14. FENTANYL [Concomitant]
     Dosage: 200 MG, UNK
     Route: 042
     Dates: start: 20010630, end: 20010630
  15. NORMOSOL [Concomitant]
     Dosage: UNK
     Route: 042
     Dates: start: 20020122, end: 20020122
  16. DOPAMINE HCL [Concomitant]
     Dosage: UNK
     Route: 042
     Dates: start: 20020122
  17. AMIODARONE HCL [Concomitant]
     Dosage: 150 MG, UNK
     Route: 042
     Dates: start: 20010630, end: 20010630
  18. BENADRYL [Concomitant]
     Dosage: 100 MG, UNK
     Route: 042
     Dates: start: 20010630, end: 20010630
  19. ISOFLURANE [Concomitant]
     Dosage: UNK
     Route: 042
     Dates: start: 20020122, end: 20020122
  20. CIPROFLOXACIN [Concomitant]
  21. TRASYLOL [Suspect]
     Indication: AORTIC ANEURYSM REPAIR
     Dosage: 1 ML, UNK
     Route: 042
     Dates: start: 20010701, end: 20010701
  22. LASIX [Concomitant]
     Dosage: 40 MG, UNK
     Route: 042
     Dates: start: 20010630, end: 20010630
  23. TRASYLOL [Suspect]
     Dosage: 25 ML/HR, INFUSION DOSE
     Route: 042
     Dates: start: 20030624, end: 20030624
  24. ATROPINE [Concomitant]
     Dosage: 1 AMPULE
     Route: 042
     Dates: start: 20010630, end: 20010630
  25. ZESTRIL [Concomitant]
  26. TRASYLOL [Suspect]
     Dosage: 1 ML, TEST DOSE
     Route: 042
     Dates: start: 20030624, end: 20030624
  27. NEURONTIN [Concomitant]
     Dosage: 300 MG DAILY
     Route: 048
  28. MORPHINE SULFATE [Concomitant]
     Dosage: 5 MG, ONCE
     Dates: start: 20020120, end: 20020120
  29. SUFENTA PRESERVATIVE FREE [Concomitant]
     Dosage: UNK
     Route: 042
     Dates: start: 20020122, end: 20020122
  30. LIDOCAINE [Concomitant]
     Dosage: 100 MG, UNK
     Route: 042
     Dates: start: 20010630, end: 20010630
  31. LIDOCAINE [Concomitant]
     Dosage: 200 MG, UNK
     Route: 042
     Dates: start: 20020122, end: 20020122
  32. LASIX [Concomitant]
     Dosage: 20 MG, UNK
     Route: 042
     Dates: start: 20020122, end: 20020122
  33. BACITRACIN [Concomitant]
     Dosage: 50,000 X2
     Route: 042
  34. PLAVIX [Concomitant]
     Dosage: 75 UNK DAILY
  35. DOPAMINE HCL [Concomitant]
     Dosage: 400 MG, UNK
     Route: 042
     Dates: start: 20010630, end: 20010630
  36. VANCOMYCIN [Concomitant]
     Dosage: UNK
     Route: 042
     Dates: start: 20010630, end: 20010630
  37. VALIUM [Concomitant]
     Dosage: 5 MG, UNK
     Route: 042
     Dates: start: 20010630, end: 20010630
  38. TRASYLOL [Suspect]
     Indication: AORTIC BYPASS
     Dosage: UNK
     Dates: start: 20020122, end: 20020122
  39. TRASYLOL [Suspect]
     Dosage: 1000000 U, LOADING DOSE
     Route: 042
     Dates: start: 20030624, end: 20030624
  40. PEPCID [Concomitant]
     Dosage: 40MG AT BEDTIME
     Route: 048

REACTIONS (6)
  - RENAL FAILURE [None]
  - UNEVALUABLE EVENT [None]
  - INJURY [None]
  - PSYCHOLOGICAL TRAUMA [None]
  - PAIN [None]
  - RENAL FAILURE ACUTE [None]
